FAERS Safety Report 8012860-6 (Version None)
Quarter: 2011Q4

REPORT INFORMATION
  Report Type: 
  Country: None (occurrence: None)
  Receive Date: 20111229
  Receipt Date: 20111219
  Transmission Date: 20120403
  Serious: Yes (Hospitalization, Other)
  Sender: FDA-Public Use
  Company Number: FR-BRISTOL-MYERS SQUIBB COMPANY-16307761

PATIENT
  Age: 91 Year
  Sex: Female

DRUGS (7)
  1. LERCANIDIPINE [Suspect]
     Route: 048
  2. CLORAZEPATE DIPOTASSIUM [Suspect]
     Route: 048
  3. FENOFIBRATE [Concomitant]
     Dosage: 1DF:145 UNITS NOS
  4. VASTAREL [Concomitant]
  5. IRBESARTAN AND HYDROCHLOROTHIAZIDE [Suspect]
     Dosage: 1DF:300 UNITS NOS
     Route: 048
  6. TENORMIN [Suspect]
     Route: 048
  7. ASPIRIN [Concomitant]

REACTIONS (4)
  - DIZZINESS [None]
  - FALL [None]
  - ELECTROCARDIOGRAM QT PROLONGED [None]
  - BLOOD PRESSURE DECREASED [None]
